FAERS Safety Report 6493452-7 (Version None)
Quarter: 2009Q4

REPORT INFORMATION
  Report Type: 
  Country: None (occurrence: None)
  Receive Date: 20091209
  Receipt Date: 20091124
  Transmission Date: 20100525
  Serious: Yes (Other)
  Sender: FDA-Public Use
  Company Number: 230003M05NOR

PATIENT
  Age: 55 Year
  Sex: Female

DRUGS (5)
  1. REBIF [Suspect]
     Indication: SECONDARY PROGRESSIVE MULTIPLE SCLEROSIS
     Dosage: 22 MCG, 1 IN 1 WEEKS, 44 MCG, 3 IN 1 WEEKS
     Dates: start: 19991018, end: 20001201
  2. REBIF [Suspect]
     Indication: SECONDARY PROGRESSIVE MULTIPLE SCLEROSIS
     Dosage: 22 MCG, 1 IN 1 WEEKS, 44 MCG, 3 IN 1 WEEKS
     Dates: start: 19960101
  3. CETIPRIN (EMEPRONIUM BROMIDE) [Concomitant]
  4. CARBAMIDE CREAM (CARBAMIDE PRODUCTS) [Concomitant]
  5. BACLOFEN [Concomitant]

REACTIONS (5)
  - ACTINIC KERATOSIS [None]
  - ALOPECIA [None]
  - BASAL CELL CARCINOMA [None]
  - BOWEN'S DISEASE [None]
  - SQUAMOUS CELL CARCINOMA [None]
